FAERS Safety Report 4881715-8 (Version None)
Quarter: 2006Q1

REPORT INFORMATION
  Report Type: 
  Country: None (occurrence: None)
  Receive Date: 20060116
  Receipt Date: 20060109
  Transmission Date: 20060701
  Serious: Yes (Hospitalization)
  Sender: FDA-Public Use
  Company Number: AU-ROCHE-431081

PATIENT
  Age: 81 Year
  Sex: Female

DRUGS (5)
  1. CEFTRIAXONE SODIUM [Suspect]
     Indication: DRUG USE FOR UNKNOWN INDICATION
     Route: 065
  2. RULIDE [Suspect]
     Indication: DRUG USE FOR UNKNOWN INDICATION
     Route: 048
  3. ACETAMINOPHEN [Concomitant]
     Dosage: LONGTERM THERAPY.
  4. AROPAX [Concomitant]
     Dosage: LONGTERM THERAPY.
  5. THYROXINE SODIUM [Concomitant]
     Dosage: LONGTERM THERAPY.
     Route: 048

REACTIONS (3)
  - BLISTER [None]
  - DERMATITIS BULLOUS [None]
  - PRURITUS [None]
